FAERS Safety Report 11149974 (Version 3)
Quarter: 2015Q2

REPORT INFORMATION
  Report Type: Spontaneous
  Country: US (occurrence: US)
  Receive Date: 20150529
  Receipt Date: 20150629
  Transmission Date: 20150821
  Serious: Yes (Hospitalization, Other)
  Sender: FDA-Public Use
  Company Number: US-GLAXOSMITHKLINE-US2015GSK073109

PATIENT
  Sex: Female

DRUGS (1)
  1. ADVAIR DISKUS [Suspect]
     Active Substance: FLUTICASONE PROPIONATE\SALMETEROL XINAFOATE
     Indication: ASTHMA
     Dosage: UNK, U
     Route: 065

REACTIONS (6)
  - Resuscitation [Unknown]
  - Therapeutic procedure [Unknown]
  - Impaired work ability [Unknown]
  - Pneumonia [Unknown]
  - Hospitalisation [Unknown]
  - Respiratory arrest [Recovered/Resolved]

NARRATIVE: CASE EVENT DATE: 2015
